FAERS Safety Report 23982274 (Version 1)
Quarter: 2024Q2

REPORT INFORMATION
  Report Type: Spontaneous
  Country: US (occurrence: None)
  Receive Date: 20240616
  Receipt Date: 20240616
  Transmission Date: 20240716
  Serious: No
  Sender: FDA-Public Use
  Company Number: None

PATIENT
  Age: 80 Year
  Sex: Male

DRUGS (9)
  1. VERQUVO [Suspect]
     Active Substance: VERICIGUAT
     Indication: Cardiac disorder
     Dosage: 1 TABLET DAILY ORAL?
     Route: 048
     Dates: start: 20240601
  2. ATORVASTATIN CALCIUM [Concomitant]
     Active Substance: ATORVASTATIN CALCIUM
  3. TAMSULOSIN HYDROCHLORIDE [Concomitant]
     Active Substance: TAMSULOSIN HYDROCHLORIDE
  4. EMPAGLIFLOZIN [Concomitant]
     Active Substance: EMPAGLIFLOZIN
  5. CETIRIZINE HCL [Concomitant]
     Active Substance: CETIRIZINE HYDROCHLORIDE
  6. SACBITRIL [Concomitant]
  7. VALSARTAN [Concomitant]
     Active Substance: VALSARTAN
  8. XARELTO [Concomitant]
     Active Substance: RIVAROXABAN
  9. ASPIRIN [Concomitant]
     Active Substance: ASPIRIN

REACTIONS (3)
  - Dizziness postural [None]
  - Balance disorder [None]
  - Feeling drunk [None]

NARRATIVE: CASE EVENT DATE: 20240601
